FAERS Safety Report 25219696 (Version 2)
Quarter: 2025Q4

REPORT INFORMATION
  Report Type: Report from Study
  Country: CA (occurrence: CA)
  Receive Date: 20250421
  Receipt Date: 20251015
  Transmission Date: 20260118
  Serious: Yes (Hospitalization, Other)
  Sender: ACCORD
  Company Number: None

PATIENT
  Age: 39 Year
  Sex: Female

DRUGS (5)
  1. CAPECITABINE [Suspect]
     Active Substance: CAPECITABINE
     Indication: Breast cancer metastatic
     Dosage: 1 EVERY 1 DAY
  2. FEMARA [Suspect]
     Active Substance: LETROZOLE
     Indication: Breast cancer metastatic
     Dosage: 1 EVERY 1 DAY
     Route: 048
  3. RIBOCICLIB [Suspect]
     Active Substance: RIBOCICLIB
     Indication: Breast cancer metastatic
     Dosage: 1 EVERY 1 DAY
     Route: 048
  4. GOSERELIN ACETATE [Concomitant]
     Active Substance: GOSERELIN ACETATE
     Indication: Breast cancer metastatic
  5. RIBOCICLIB [Suspect]
     Active Substance: RIBOCICLIB
     Indication: Breast cancer metastatic
     Dosage: 1 EVERY 1 DAY
     Route: 048

REACTIONS (13)
  - Breast cancer metastatic [Recovered/Resolved]
  - Asthenia [Recovered/Resolved]
  - Drug ineffective [Recovered/Resolved]
  - Ill-defined disorder [Recovered/Resolved]
  - Illness [Recovered/Resolved]
  - Nausea [Recovered/Resolved]
  - Metastases to lung [Recovered/Resolved]
  - Pleural effusion [Recovered/Resolved]
  - Dysphonia [Recovered/Resolved]
  - Fatigue [Recovered/Resolved]
  - Malignant neoplasm progression [Recovered/Resolved]
  - Metastases to the mediastinum [Recovered/Resolved]
  - Hypersomnia [Recovered/Resolved]
